FAERS Safety Report 20721385 (Version 1)
Quarter: 2022Q2

REPORT INFORMATION
  Report Type: Spontaneous
  Country: US (occurrence: US)
  Receive Date: 20220418
  Receipt Date: 20220418
  Transmission Date: 20220720
  Serious: Yes (Death, Other)
  Sender: FDA-Public Use
  Company Number: US-BRISTOL-MYERS SQUIBB COMPANY-2022-018815

PATIENT
  Sex: Male
  Weight: 64.41 kg

DRUGS (4)
  1. OPDIVO [Suspect]
     Active Substance: NIVOLUMAB
     Indication: Renal cancer
     Route: 040
  2. OPDIVO [Suspect]
     Active Substance: NIVOLUMAB
     Indication: Atrial fibrillation
  3. ELIQUIS [Suspect]
     Active Substance: APIXABAN
     Indication: Renal neoplasm
     Route: 048
  4. ELIQUIS [Suspect]
     Active Substance: APIXABAN
     Indication: Atrial fibrillation

REACTIONS (1)
  - Death [Fatal]
